FAERS Safety Report 6407408-3 (Version None)
Quarter: 2009Q4

REPORT INFORMATION
  Report Type: 
  Country: None (occurrence: None)
  Receive Date: 20091014
  Receipt Date: 20091005
  Transmission Date: 20100525
  Serious: Yes (Other)
  Sender: FDA-Public Use
  Company Number: 397158

PATIENT
  Age: 78 Year
  Sex: Male

DRUGS (4)
  1. (PAMIDRONIC ACID) [Suspect]
     Indication: METASTASES TO BONE
     Dosage: INTRAVENOUS
     Route: 042
  2. PREDNISOLONE [Concomitant]
  3. (ANESTHETICS, LOCAL) [Concomitant]
  4. (ANESTHETICS, GENERAL) [Concomitant]

REACTIONS (7)
  - IMPAIRED HEALING [None]
  - INFECTION [None]
  - JAW FRACTURE [None]
  - MALOCCLUSION [None]
  - OSTEONECROSIS [None]
  - PERICORONITIS [None]
  - TOOTH IMPACTED [None]
